FAERS Safety Report 11152112 (Version 1)
Quarter: 2015Q2

REPORT INFORMATION
  Report Type: Spontaneous
  Country: CN (occurrence: CN)
  Receive Date: 20150601
  Receipt Date: 20150601
  Transmission Date: 20150821
  Serious: Yes (Hospitalization)
  Sender: FDA-Public Use
  Company Number: CN-CEDAR PHARMACEUTICALS-2015CDR00003

PATIENT
  Age: 43 Year
  Sex: Male

DRUGS (1)
  1. METHIMAZOLE. [Suspect]
     Active Substance: METHIMAZOLE
     Indication: HYPERTHYROIDISM
     Dosage: 30 MG, 1X/DAY
     Route: 048

REACTIONS (3)
  - Necrosis ischaemic [Recovering/Resolving]
  - Bronchopulmonary aspergillosis [Recovering/Resolving]
  - Agranulocytosis [Recovered/Resolved]
